FAERS Safety Report 7627879-4 (Version None)
Quarter: 2011Q3

REPORT INFORMATION
  Report Type: 
  Country: None (occurrence: None)
  Receive Date: 20110721
  Receipt Date: 20110719
  Transmission Date: 20111222
  Serious: Yes (Hospitalization)
  Sender: FDA-Public Use
  Company Number: CA-MERCK-1107USA02386

PATIENT
  Age: 71 Year
  Sex: Female

DRUGS (6)
  1. ASPIRIN [Concomitant]
     Route: 048
  2. JANUVIA [Suspect]
     Route: 048
  3. ATORVASTATIN CALCIUM [Concomitant]
     Route: 048
  4. BISOPROLOL [Concomitant]
     Route: 048
  5. METFORMIN [Concomitant]
     Route: 048
  6. RABEPRAZOLE SODIUM [Concomitant]
     Route: 048

REACTIONS (3)
  - PANCREATITIS [None]
  - GASTROOESOPHAGEAL REFLUX DISEASE [None]
  - ABDOMINAL PAIN [None]
